FAERS Safety Report 6311717-6 (Version None)
Quarter: 2009Q3

REPORT INFORMATION
  Report Type: 
  Country: None (occurrence: None)
  Receive Date: 20090817
  Receipt Date: 20090714
  Transmission Date: 20100115
  Serious: No
  Sender: FDA-Public Use
  Company Number: US-B.I. PHARMACEUTICALS,INC./RIDGEFIELD-2009-BP-09617BP

PATIENT

DRUGS (3)
  1. VIRAMUNE [Suspect]
     Indication: HIV INFECTION
     Dates: start: 20050101
  2. EPZICOM [Concomitant]
     Indication: HIV INFECTION
     Dates: start: 20050101
  3. KALETRA [Concomitant]
     Dates: start: 20050101

REACTIONS (3)
  - CD4 LYMPHOCYTES DECREASED [None]
  - LIPODYSTROPHY ACQUIRED [None]
  - NEPHROLITHIASIS [None]
